FAERS Safety Report 16362004 (Version 26)
Quarter: 2025Q1

REPORT INFORMATION
  Report Type: Spontaneous
  Country: US (occurrence: US)
  Receive Date: 20190528
  Receipt Date: 20250213
  Transmission Date: 20250408
  Serious: Yes (Hospitalization)
  Sender: PFIZER
  Company Number: US-PFIZER INC-2019226757

PATIENT
  Age: 63 Year
  Sex: Male
  Weight: 117.93 kg

DRUGS (8)
  1. NORPACE CR [Suspect]
     Active Substance: DISOPYRAMIDE PHOSPHATE
     Indication: Hypertrophic cardiomyopathy
     Dosage: 100 MG, 2X/DAY
  2. NORPACE CR [Suspect]
     Active Substance: DISOPYRAMIDE PHOSPHATE
     Indication: Cardiac disorder
     Dosage: 150 MG, 2X/DAY
  3. NORPACE CR [Suspect]
     Active Substance: DISOPYRAMIDE PHOSPHATE
     Indication: Cardiomegaly
     Dosage: 150 MG, 3X/DAY
  4. NORPACE CR [Suspect]
     Active Substance: DISOPYRAMIDE PHOSPHATE
     Indication: Nasal septum disorder
     Dosage: TAKES 1, 100MG CAPSULE AND 1, 150MG CAPSULE, TWICE A DAY
  5. NORPACE CR [Suspect]
     Active Substance: DISOPYRAMIDE PHOSPHATE
     Dosage: 150 MG, 2X/DAY
     Dates: start: 2014
  6. NORPACE CR [Suspect]
     Active Substance: DISOPYRAMIDE PHOSPHATE
     Dosage: NORPACE CR 150 MG AND NORPACE CR 100 MG (I DO TAKE BOTH OF THEM BECAUSE I TAKE 250 MG TWICE A DAY)
  7. METOPROLOL [Concomitant]
     Active Substance: METOPROLOL
     Indication: Heart rate irregular
  8. LISINOPRIL [Concomitant]
     Active Substance: LISINOPRIL

REACTIONS (4)
  - Road traffic accident [Unknown]
  - Off label use [Unknown]
  - Drug level fluctuating [Unknown]
  - Palpitations [Unknown]
